FAERS Safety Report 14491935 (Version 1)
Quarter: 2018Q1

REPORT INFORMATION
  Report Type: Spontaneous
  Country: GR (occurrence: GR)
  Receive Date: 20180206
  Receipt Date: 20180206
  Transmission Date: 20180509
  Serious: Yes (Other)
  Sender: FDA-Public Use
  Company Number: GR-ABBVIE-18S-066-2240869-00

PATIENT
  Sex: Female

DRUGS (2)
  1. VIEKIRAX [Suspect]
     Active Substance: OMBITASVIR\PARITAPREVIR\RITONAVIR
     Indication: CHRONIC HEPATITIS C
     Route: 048
     Dates: start: 20160223, end: 20160517
  2. EXVIERA [Suspect]
     Active Substance: DASABUVIR
     Indication: CHRONIC HEPATITIS C
     Route: 048
     Dates: start: 20160223, end: 20160517

REACTIONS (4)
  - Meniscus injury [Recovering/Resolving]
  - Joint range of motion decreased [Unknown]
  - Joint swelling [Unknown]
  - Tendon rupture [Recovered/Resolved]

NARRATIVE: CASE EVENT DATE: 2016
